FAERS Safety Report 21811820 (Version 2)
Quarter: 2023Q1

REPORT INFORMATION
  Report Type: Spontaneous
  Country: US (occurrence: None)
  Receive Date: 20230103
  Receipt Date: 20230228
  Transmission Date: 20230417
  Serious: No
  Sender: FDA-Public Use
  Company Number: 2022A413907

PATIENT
  Age: 71 Year
  Sex: Male

DRUGS (2)
  1. BYDUREON BCISE [Suspect]
     Active Substance: EXENATIDE
     Indication: Diabetes mellitus
     Dosage: 8-9 YEARS AGO
     Route: 058
  2. BYDUREON BCISE [Suspect]
     Active Substance: EXENATIDE
     Indication: Diabetes mellitus
     Route: 058
     Dates: start: 20221215

REACTIONS (6)
  - Injection site injury [Unknown]
  - Feeling abnormal [Unknown]
  - Glycosylated haemoglobin increased [Unknown]
  - Incorrect dose administered by device [Unknown]
  - Therapy cessation [Unknown]
  - Device delivery system issue [Unknown]

NARRATIVE: CASE EVENT DATE: 20221215
